FAERS Safety Report 8552654-6 (Version None)
Quarter: 2012Q3

REPORT INFORMATION
  Report Type: 
  Country: None (occurrence: None)
  Receive Date: 20120731
  Receipt Date: 20120724
  Transmission Date: 20120928
  Serious: No
  Sender: FDA-Public Use
  Company Number: US-PFIZER INC-2012179845

PATIENT
  Sex: Female
  Weight: 68.027 kg

DRUGS (3)
  1. AMITRIPTYLINE [Concomitant]
     Indication: SLEEP DISORDER
     Dosage: 75 MG, DAILY
  2. AMITRIPTYLINE [Concomitant]
     Indication: MYALGIA
  3. LYRICA [Suspect]
     Indication: FIBROMYALGIA
     Dosage: UNK
     Dates: start: 20091101, end: 20120101

REACTIONS (2)
  - ABNORMAL DREAMS [None]
  - POST-TRAUMATIC STRESS DISORDER [None]
